FAERS Safety Report 24122637 (Version 1)
Quarter: 2024Q3

REPORT INFORMATION
  Report Type: Spontaneous
  Country: US (occurrence: US)
  Receive Date: 20240723
  Receipt Date: 20240723
  Transmission Date: 20241017
  Serious: Yes (Other)
  Sender: Unknown Manufacturer
  Company Number: US-KOANAAP-SML-US-2024-00730

PATIENT
  Age: 67 Year
  Sex: Male

DRUGS (7)
  1. CAPECITABINE [Suspect]
     Active Substance: CAPECITABINE
     Indication: Insulinoma
  2. PASIREOTIDE [Suspect]
     Active Substance: PASIREOTIDE
     Indication: Insulinoma
  3. TEMOZOLOMIDE [Suspect]
     Active Substance: TEMOZOLOMIDE
     Indication: Insulinoma
  4. DIAZOXIDE [Concomitant]
     Active Substance: DIAZOXIDE
     Indication: Hypoglycaemia
  5. PREDNISONE [Concomitant]
     Active Substance: PREDNISONE
     Indication: Hypoglycaemia
     Route: 065
  6. OCTREOTIDE [Concomitant]
     Active Substance: OCTREOTIDE\OCTREOTIDE ACETATE
     Indication: Hypoglycaemia
     Dosage: 100 MCG
     Route: 058
  7. OCTREOTIDE [Concomitant]
     Active Substance: OCTREOTIDE\OCTREOTIDE ACETATE
     Indication: Pancreatic neuroendocrine tumour

REACTIONS (1)
  - Drug ineffective [Unknown]
